FAERS Safety Report 8341873-X (Version None)
Quarter: 2012Q2

REPORT INFORMATION
  Report Type: 
  Country: None (occurrence: None)
  Receive Date: 20120507
  Receipt Date: 20120501
  Transmission Date: 20120825
  Serious: No
  Sender: FDA-Public Use
  Company Number: US-PFIZER INC-2012107097

PATIENT
  Sex: Female
  Weight: 48.073 kg

DRUGS (4)
  1. ZETIA [Concomitant]
     Dosage: UNK
  2. EFFEXOR [Concomitant]
     Dosage: UNK
  3. PREMPRO [Suspect]
     Indication: MENOPAUSAL SYMPTOMS
     Dosage: 0.3/1.5 MG, 1X/DAY
     Route: 048
     Dates: start: 20110401
  4. KLONOPIN [Concomitant]
     Dosage: UNK

REACTIONS (1)
  - ASPARTATE AMINOTRANSFERASE INCREASED [None]
